FAERS Safety Report 7940853-3 (Version None)
Quarter: 2011Q4

REPORT INFORMATION
  Report Type: 
  Country: None (occurrence: None)
  Receive Date: 20111122
  Receipt Date: 20111107
  Transmission Date: 20120403
  Serious: Yes (Other)
  Sender: FDA-Public Use
  Company Number: 2011P1010163

PATIENT
  Age: 73 Year
  Sex: Male

DRUGS (8)
  1. OMEPRAZOLE [Concomitant]
  2. CALCIUM WITH VITAMIN D [Concomitant]
  3. SERTRALINE HYDROCHLORIDE [Concomitant]
  4. FINASTERIDE [Concomitant]
  5. ASPIRIN [Concomitant]
  6. VALPROIC ACID [Suspect]
     Indication: BIPOLAR DISORDER
     Dosage: 500 MG, BID
  7. TERAZOSIN HCL [Concomitant]
  8. EPOETIN ALFA [Concomitant]

REACTIONS (4)
  - DRUG RESISTANCE [None]
  - MANIA [None]
  - PANCYTOPENIA [None]
  - DELUSION [None]
